FAERS Safety Report 20839782 (Version 1)
Quarter: 2022Q2

REPORT INFORMATION
  Report Type: Report from Study
  Country: US (occurrence: None)
  Receive Date: 20220517
  Receipt Date: 20220517
  Transmission Date: 20220721
  Serious: Yes (Death)
  Sender: FDA-Public Use
  Company Number: 2022A186656

PATIENT
  Age: 26766 Day
  Sex: Female

DRUGS (6)
  1. TAGRISSO [Suspect]
     Active Substance: OSIMERTINIB
     Indication: Non-small cell lung cancer
     Route: 048
     Dates: start: 20211026
  2. REGLAN [Concomitant]
     Active Substance: METOCLOPRAMIDE HYDROCHLORIDE
  3. ZOFRAN [Concomitant]
     Active Substance: ONDANSETRON HYDROCHLORIDE
  4. BENEFIBER [Concomitant]
     Active Substance: STARCH, WHEAT
  5. COLACE [Concomitant]
     Active Substance: DOCUSATE SODIUM
  6. SENNA-S [Concomitant]
     Active Substance: DOCUSATE SODIUM\SENNOSIDES

REACTIONS (1)
  - Death [Fatal]

NARRATIVE: CASE EVENT DATE: 20220505
